FAERS Safety Report 8502675-4 (Version None)
Quarter: 2012Q3

REPORT INFORMATION
  Report Type: 
  Country: None (occurrence: None)
  Receive Date: 20120711
  Receipt Date: 20120703
  Transmission Date: 20120928
  Serious: Yes (Hospitalization)
  Sender: FDA-Public Use
  Company Number: US-UCBSA-049482

PATIENT
  Age: 78 Year
  Sex: Female
  Weight: 49.4 kg

DRUGS (1)
  1. CIMZIA [Suspect]
     Indication: RHEUMATOID ARTHRITIS
     Route: 058

REACTIONS (7)
  - GASTRITIS [None]
  - FEMUR FRACTURE [None]
  - FALL [None]
  - HEAD INJURY [None]
  - DIARRHOEA [None]
  - WEIGHT DECREASED [None]
  - GASTRIC POLYPS [None]
